FAERS Safety Report 14523436 (Version 15)
Quarter: 2020Q2

REPORT INFORMATION
  Report Type: Spontaneous
  Country: DE (occurrence: DE)
  Receive Date: 20180212
  Receipt Date: 20200611
  Transmission Date: 20200713
  Serious: Yes (Hospitalization, Other)
  Sender: FDA-Public Use
  Company Number: DE-ASTRAZENECA-2018SE14663

PATIENT
  Age: 75 Year
  Sex: Male
  Weight: 81 kg

DRUGS (102)
  1. TOCILIZUMAB. [Suspect]
     Active Substance: TOCILIZUMAB
     Indication: RHEUMATOID ARTHRITIS
     Dosage: 162 MG, UNK, EVERY 12 DAYS
     Route: 065
     Dates: start: 201404
  2. TOCILIZUMAB. [Suspect]
     Active Substance: TOCILIZUMAB
     Indication: MYALGIA
     Dosage: 162 MG, BID
     Route: 065
     Dates: start: 20180131
  3. TOCILIZUMAB. [Suspect]
     Active Substance: TOCILIZUMAB
     Indication: VASCULITIS
     Dosage: 162 MG, DAILY
     Route: 058
     Dates: start: 20180131
  4. TOCILIZUMAB. [Suspect]
     Active Substance: TOCILIZUMAB
     Indication: RHEUMATOID ARTHRITIS
     Dosage: 162 MG, DAILY
     Route: 058
     Dates: start: 201904
  5. COLECALCIFEROL [Suspect]
     Active Substance: CHOLECALCIFEROL
     Indication: OFF LABEL USE
     Dosage: 1000 IU, UNK
     Route: 048
  6. ESCITALOPRAM [Concomitant]
     Active Substance: ESCITALOPRAM OXALATE
     Indication: PRODUCT USED FOR UNKNOWN INDICATION
     Dosage: 10 DROPS DAILY
     Route: 048
  7. CORTISONE ACETATE. [Concomitant]
     Active Substance: CORTISONE ACETATE
     Indication: PRODUCT USED FOR UNKNOWN INDICATION
     Dosage: 10 MG, DAYS
  8. AMLODIPIN [Concomitant]
     Active Substance: AMLODIPINE BESYLATE
     Indication: OFF LABEL USE
     Route: 065
  9. CLEXANE [Suspect]
     Active Substance: ENOXAPARIN SODIUM
     Indication: VENOUS THROMBOSIS LIMB
     Route: 065
     Dates: start: 201507
  10. TOCILIZUMAB. [Suspect]
     Active Substance: TOCILIZUMAB
     Indication: VASCULITIS
     Dosage: 162 MG, UNK, EVERY 12 DAYS
     Route: 065
     Dates: start: 20150706, end: 20171025
  11. TOCILIZUMAB. [Suspect]
     Active Substance: TOCILIZUMAB
     Indication: VASCULITIS
     Dosage: 162 MG, UNK, EVERY 12 DAYS
     Route: 065
     Dates: start: 20180414
  12. TOCILIZUMAB. [Suspect]
     Active Substance: TOCILIZUMAB
     Indication: RHEUMATOID ARTHRITIS
     Dosage: 324 MG ONCE A DAY
     Route: 058
     Dates: start: 20140601, end: 201506
  13. TOCILIZUMAB. [Suspect]
     Active Substance: TOCILIZUMAB
     Indication: MYALGIA
     Dosage: 324 MG EVERY 12 DAYS
     Route: 058
     Dates: start: 20150706, end: 20171025
  14. TOCILIZUMAB. [Suspect]
     Active Substance: TOCILIZUMAB
     Indication: VASCULITIS
     Dosage: 162 MG, UNK, EVERY 14 DAYS
     Route: 058
     Dates: start: 201704, end: 20171025
  15. TOCILIZUMAB. [Suspect]
     Active Substance: TOCILIZUMAB
     Indication: RHEUMATOID ARTHRITIS
     Dosage: 162 MG, UNK, EVERY 14 DAYS
     Route: 058
     Dates: start: 201704, end: 20171025
  16. TOCILIZUMAB. [Suspect]
     Active Substance: TOCILIZUMAB
     Indication: MYALGIA
     Dosage: 162 MG, DAILY
     Route: 058
     Dates: start: 20180131
  17. TOCILIZUMAB. [Suspect]
     Active Substance: TOCILIZUMAB
     Indication: TEMPORAL ARTERITIS
     Dosage: 162 MG EVERY 7 DAYS
     Route: 058
     Dates: start: 20190227, end: 20190327
  18. TOCILIZUMAB. [Suspect]
     Active Substance: TOCILIZUMAB
     Indication: VASCULITIS
     Dosage: 162 MG EVERY 9 DAYS
     Route: 058
     Dates: start: 20190328, end: 20190404
  19. TOCILIZUMAB. [Suspect]
     Active Substance: TOCILIZUMAB
     Indication: VASCULITIS
     Dosage: 162 MG, DAILY
     Route: 058
     Dates: start: 201904
  20. PROLIA [Suspect]
     Active Substance: DENOSUMAB
     Indication: OSTEOPOROSIS
     Route: 065
  21. PROLIA [Suspect]
     Active Substance: DENOSUMAB
     Indication: OFF LABEL USE
     Route: 065
  22. QUETIAPINE. [Suspect]
     Active Substance: QUETIAPINE
     Indication: PRODUCT USED FOR UNKNOWN INDICATION
     Route: 048
  23. TOCILIZUMAB. [Suspect]
     Active Substance: TOCILIZUMAB
     Indication: TEMPORAL ARTERITIS
     Dosage: 162 MG, UNK, EVERY 12 DAYS
     Route: 065
     Dates: start: 20150706, end: 20171025
  24. TOCILIZUMAB. [Suspect]
     Active Substance: TOCILIZUMAB
     Indication: VASCULITIS
     Dosage: 162 MG, BID
     Route: 065
     Dates: start: 201704, end: 20171025
  25. TOCILIZUMAB. [Suspect]
     Active Substance: TOCILIZUMAB
     Indication: VASCULITIS
     Dosage: 162 MG, EVERY 14 DAYS
     Route: 058
  26. TOCILIZUMAB. [Suspect]
     Active Substance: TOCILIZUMAB
     Indication: RHEUMATOID ARTHRITIS
     Dosage: 162 MG, EVERY 14 DAYS
     Route: 058
  27. TOCILIZUMAB. [Suspect]
     Active Substance: TOCILIZUMAB
     Indication: MYALGIA
     Dosage: 162 MG, EVERY 14 DAYS
     Route: 058
  28. TOCILIZUMAB. [Suspect]
     Active Substance: TOCILIZUMAB
     Indication: MYALGIA
     Dosage: 324 MG ONCE A DAY
     Route: 058
     Dates: start: 20140601, end: 201506
  29. TOCILIZUMAB. [Suspect]
     Active Substance: TOCILIZUMAB
     Indication: TEMPORAL ARTERITIS
     Dosage: 324 MG ONCE A DAY
     Route: 058
     Dates: start: 20140601, end: 201506
  30. TOCILIZUMAB. [Suspect]
     Active Substance: TOCILIZUMAB
     Indication: TEMPORAL ARTERITIS
     Dosage: 324 MG ONCE A DAY
     Route: 058
     Dates: start: 20140601, end: 201506
  31. TOCILIZUMAB. [Suspect]
     Active Substance: TOCILIZUMAB
     Indication: RHEUMATOID ARTHRITIS
     Dosage: 324 MG EVERY 12 DAYS
     Route: 058
     Dates: start: 20150706, end: 20171025
  32. TOCILIZUMAB. [Suspect]
     Active Substance: TOCILIZUMAB
     Indication: TEMPORAL ARTERITIS
     Dosage: 162 MG EVERY THREE WEEKS
     Route: 058
     Dates: start: 201811
  33. TOCILIZUMAB. [Suspect]
     Active Substance: TOCILIZUMAB
     Indication: MYALGIA
     Dosage: 162 MG EVERY 7 DAYS
     Route: 058
     Dates: start: 20190227, end: 20190327
  34. TOCILIZUMAB. [Suspect]
     Active Substance: TOCILIZUMAB
     Indication: TEMPORAL ARTERITIS
     Dosage: 162 MG EVERY 9 DAYS
     Route: 058
     Dates: start: 20190328, end: 20190404
  35. LISIHEXAL [Concomitant]
     Active Substance: LISINOPRIL
     Indication: PRODUCT USED FOR UNKNOWN INDICATION
     Dosage: 20.0MG UNKNOWN
     Route: 065
  36. CLEXANE [Suspect]
     Active Substance: ENOXAPARIN SODIUM
     Indication: VENOUS THROMBOSIS LIMB
     Route: 065
  37. NADROPARINE CALCIUM [Suspect]
     Active Substance: NADROPARIN CALCIUM
     Indication: VENOUS THROMBOSIS LIMB
     Route: 065
     Dates: start: 201507
  38. NADROPARINE CALCIUM [Suspect]
     Active Substance: NADROPARIN CALCIUM
     Indication: VENOUS THROMBOSIS LIMB
     Route: 065
  39. TOCILIZUMAB. [Suspect]
     Active Substance: TOCILIZUMAB
     Indication: VASCULITIS
     Dosage: 162 MG, UNK, EVERY 12 DAYS
     Route: 065
     Dates: start: 201404
  40. TOCILIZUMAB. [Suspect]
     Active Substance: TOCILIZUMAB
     Indication: RHEUMATOID ARTHRITIS
     Dosage: 162 MG, UNK, EVERY 12 DAYS
     Route: 065
     Dates: start: 201506
  41. TOCILIZUMAB. [Suspect]
     Active Substance: TOCILIZUMAB
     Indication: VASCULITIS
     Dosage: 162 MG, UNK, EVERY 12 DAYS
     Route: 065
     Dates: start: 201506
  42. TOCILIZUMAB. [Suspect]
     Active Substance: TOCILIZUMAB
     Indication: RHEUMATOID ARTHRITIS
     Dosage: 162 MG, UNK, EVERY 12 DAYS
     Route: 065
     Dates: start: 20150706, end: 20171025
  43. TOCILIZUMAB. [Suspect]
     Active Substance: TOCILIZUMAB
     Indication: VASCULITIS
     Dosage: 162 MG, BID
     Route: 065
     Dates: start: 20180131
  44. TOCILIZUMAB. [Suspect]
     Active Substance: TOCILIZUMAB
     Indication: MYALGIA
     Dosage: 162 MG, UNK, EVERY 12 DAYS
     Route: 065
     Dates: start: 20180414
  45. TOCILIZUMAB. [Suspect]
     Active Substance: TOCILIZUMAB
     Indication: VASCULITIS
     Dosage: 324 MG ONCE A DAY
     Route: 058
     Dates: start: 20140601, end: 201506
  46. TOCILIZUMAB. [Suspect]
     Active Substance: TOCILIZUMAB
     Indication: RHEUMATOID ARTHRITIS
     Dosage: 162 MG EVERY 14 DAYS
     Route: 058
     Dates: start: 20180414
  47. TOCILIZUMAB. [Suspect]
     Active Substance: TOCILIZUMAB
     Indication: VASCULITIS
     Dosage: 162 MG EVERY 7 DAYS
     Route: 058
     Dates: start: 20190227, end: 20190327
  48. TOCILIZUMAB. [Suspect]
     Active Substance: TOCILIZUMAB
     Indication: RHEUMATOID ARTHRITIS
     Dosage: 162 MG EVERY 7 DAYS
     Route: 058
     Dates: start: 20190227, end: 20190327
  49. TOCILIZUMAB. [Suspect]
     Active Substance: TOCILIZUMAB
     Indication: RHEUMATOID ARTHRITIS
     Dosage: 162 MG EVERY 9 DAYS
     Route: 058
     Dates: start: 20190328, end: 20190404
  50. AMLODIPIN [Concomitant]
     Active Substance: AMLODIPINE BESYLATE
     Indication: OFF LABEL USE
     Route: 065
  51. TOCILIZUMAB. [Suspect]
     Active Substance: TOCILIZUMAB
     Indication: MYALGIA
     Dosage: 162 MG, UNK, EVERY 12 DAYS
     Route: 065
     Dates: start: 201506
  52. TOCILIZUMAB. [Suspect]
     Active Substance: TOCILIZUMAB
     Indication: TEMPORAL ARTERITIS
     Dosage: 162 MG, UNK, EVERY 12 DAYS
     Route: 065
     Dates: start: 201506
  53. TOCILIZUMAB. [Suspect]
     Active Substance: TOCILIZUMAB
     Indication: MYALGIA
     Dosage: 162 MG, UNK, EVERY 12 DAYS
     Route: 065
     Dates: start: 201506
  54. TOCILIZUMAB. [Suspect]
     Active Substance: TOCILIZUMAB
     Indication: TEMPORAL ARTERITIS
     Dosage: 162 MG, UNK, EVERY 12 DAYS
     Route: 065
     Dates: start: 201506
  55. TOCILIZUMAB. [Suspect]
     Active Substance: TOCILIZUMAB
     Indication: TEMPORAL ARTERITIS
     Dosage: 162 MG, BID
     Route: 065
     Dates: start: 20180131
  56. TOCILIZUMAB. [Suspect]
     Active Substance: TOCILIZUMAB
     Indication: MYALGIA
     Dosage: 162 MG, UNK, EVERY 14 DAYS
     Route: 058
     Dates: start: 201704, end: 20171025
  57. TOCILIZUMAB. [Suspect]
     Active Substance: TOCILIZUMAB
     Indication: RHEUMATOID ARTHRITIS
     Dosage: 162 MG, DAILY
     Route: 058
     Dates: start: 20180131
  58. TOCILIZUMAB. [Suspect]
     Active Substance: TOCILIZUMAB
     Indication: VASCULITIS
     Dosage: 162 MG, UNK, EVERY 10 DAYS
     Route: 058
     Dates: start: 20180414
  59. TOCILIZUMAB. [Suspect]
     Active Substance: TOCILIZUMAB
     Indication: MYALGIA
     Dosage: 162 MG, UNK, EVERY 10 DAYS
     Route: 058
     Dates: start: 20180414
  60. TOCILIZUMAB. [Suspect]
     Active Substance: TOCILIZUMAB
     Indication: TEMPORAL ARTERITIS
     Dosage: 162 MG EVERY 14 DAYS
     Route: 058
     Dates: start: 20180414
  61. TOCILIZUMAB. [Suspect]
     Active Substance: TOCILIZUMAB
     Indication: MYALGIA
     Dosage: 162 MG EVERY 9 DAYS
     Route: 058
     Dates: start: 20190328, end: 20190404
  62. TOCILIZUMAB. [Suspect]
     Active Substance: TOCILIZUMAB
     Indication: MYALGIA
     Dosage: 162 MG, DAILY
     Route: 058
     Dates: start: 201904
  63. COLECALCIFEROL [Suspect]
     Active Substance: CHOLECALCIFEROL
     Indication: OSTEOPOROSIS
     Dosage: 1000 IU, UNK
     Route: 048
  64. PANTOPRAZOLE [Concomitant]
     Active Substance: PANTOPRAZOLE
     Indication: PRODUCT USED FOR UNKNOWN INDICATION
  65. ESCITALOPRAM [Concomitant]
     Active Substance: ESCITALOPRAM OXALATE
     Indication: PRODUCT USED FOR UNKNOWN INDICATION
     Dosage: 8 DROPS
     Route: 048
  66. AMLODIPIN [Concomitant]
     Active Substance: AMLODIPINE BESYLATE
     Indication: PRODUCT USED FOR UNKNOWN INDICATION
     Route: 065
  67. QUETIAPINE. [Suspect]
     Active Substance: QUETIAPINE
     Indication: OFF LABEL USE
     Route: 048
  68. CLEXANE [Suspect]
     Active Substance: ENOXAPARIN SODIUM
     Indication: OFF LABEL USE
     Route: 065
     Dates: start: 201507
  69. NADROPARINE CALCIUM [Suspect]
     Active Substance: NADROPARIN CALCIUM
     Indication: OFF LABEL USE
     Route: 065
  70. TOCILIZUMAB. [Suspect]
     Active Substance: TOCILIZUMAB
     Indication: MYALGIA
     Dosage: 162 MG, UNK, EVERY 12 DAYS
     Route: 065
     Dates: start: 201404
  71. TOCILIZUMAB. [Suspect]
     Active Substance: TOCILIZUMAB
     Indication: TEMPORAL ARTERITIS
     Dosage: 162 MG, UNK, EVERY 12 DAYS
     Route: 065
     Dates: start: 201404
  72. TOCILIZUMAB. [Suspect]
     Active Substance: TOCILIZUMAB
     Indication: VASCULITIS
     Dosage: 162 MG, UNK, EVERY 12 DAYS
     Route: 065
     Dates: start: 201506
  73. TOCILIZUMAB. [Suspect]
     Active Substance: TOCILIZUMAB
     Indication: TEMPORAL ARTERITIS
     Dosage: 162 MG, BID
     Route: 065
     Dates: start: 201704, end: 20171025
  74. TOCILIZUMAB. [Suspect]
     Active Substance: TOCILIZUMAB
     Indication: RHEUMATOID ARTHRITIS
     Dosage: 162 MG, BID
     Route: 065
     Dates: start: 20180131
  75. TOCILIZUMAB. [Suspect]
     Active Substance: TOCILIZUMAB
     Indication: TEMPORAL ARTERITIS
     Dosage: 162 MG, UNK, EVERY 14 DAYS
     Route: 058
     Dates: start: 201704, end: 20171025
  76. TOCILIZUMAB. [Suspect]
     Active Substance: TOCILIZUMAB
     Indication: VASCULITIS
     Dosage: 162 MG EVERY 14 DAYS
     Route: 058
     Dates: start: 20180414
  77. TOCILIZUMAB. [Suspect]
     Active Substance: TOCILIZUMAB
     Indication: MYALGIA
     Dosage: 162 MG EVERY THREE WEEKS
     Route: 058
     Dates: start: 201811
  78. TOCILIZUMAB. [Suspect]
     Active Substance: TOCILIZUMAB
     Indication: TEMPORAL ARTERITIS
     Dosage: 162 MG, DAILY
     Route: 058
     Dates: start: 201904
  79. CLEXANE [Suspect]
     Active Substance: ENOXAPARIN SODIUM
     Indication: OFF LABEL USE
     Route: 065
  80. NADROPARINE CALCIUM [Suspect]
     Active Substance: NADROPARIN CALCIUM
     Indication: OFF LABEL USE
     Route: 065
     Dates: start: 201507
  81. TOCILIZUMAB. [Suspect]
     Active Substance: TOCILIZUMAB
     Indication: MYALGIA
     Dosage: 162 MG, UNK, EVERY 12 DAYS
     Route: 065
     Dates: start: 20150706, end: 20171025
  82. TOCILIZUMAB. [Suspect]
     Active Substance: TOCILIZUMAB
     Indication: RHEUMATOID ARTHRITIS
     Dosage: 162 MG, BID
     Route: 065
     Dates: start: 201704, end: 20171025
  83. TOCILIZUMAB. [Suspect]
     Active Substance: TOCILIZUMAB
     Indication: MYALGIA
     Dosage: 162 MG, BID
     Route: 065
     Dates: start: 201704, end: 20171025
  84. TOCILIZUMAB. [Suspect]
     Active Substance: TOCILIZUMAB
     Indication: TEMPORAL ARTERITIS
     Dosage: 162 MG, UNK, EVERY 12 DAYS
     Route: 065
     Dates: start: 20180414
  85. TOCILIZUMAB. [Suspect]
     Active Substance: TOCILIZUMAB
     Indication: TEMPORAL ARTERITIS
     Dosage: 162 MG, EVERY 14 DAYS
     Route: 058
  86. TOCILIZUMAB. [Suspect]
     Active Substance: TOCILIZUMAB
     Indication: VASCULITIS
     Dosage: 324 MG ONCE A DAY
     Route: 058
     Dates: start: 20140601, end: 201506
  87. TOCILIZUMAB. [Suspect]
     Active Substance: TOCILIZUMAB
     Indication: TEMPORAL ARTERITIS
     Dosage: 324 MG EVERY 12 DAYS
     Route: 058
     Dates: start: 20150706, end: 20171025
  88. TOCILIZUMAB. [Suspect]
     Active Substance: TOCILIZUMAB
     Indication: RHEUMATOID ARTHRITIS
     Dosage: 162 MG, UNK, EVERY 10 DAYS
     Route: 058
     Dates: start: 20180414
  89. TOCILIZUMAB. [Suspect]
     Active Substance: TOCILIZUMAB
     Indication: VASCULITIS
     Dosage: 162 MG EVERY THREE WEEKS
     Route: 058
     Dates: start: 201811
  90. PROLIA [Suspect]
     Active Substance: DENOSUMAB
     Indication: OSTEOPOROSIS
     Route: 065
     Dates: start: 201405
  91. AMLODIPIN [Concomitant]
     Active Substance: AMLODIPINE BESYLATE
     Indication: PRODUCT USED FOR UNKNOWN INDICATION
     Route: 065
  92. TOCILIZUMAB. [Suspect]
     Active Substance: TOCILIZUMAB
     Indication: RHEUMATOID ARTHRITIS
     Dosage: 162 MG, UNK, EVERY 12 DAYS
     Route: 065
     Dates: start: 201506
  93. TOCILIZUMAB. [Suspect]
     Active Substance: TOCILIZUMAB
     Indication: RHEUMATOID ARTHRITIS
     Dosage: 162 MG, UNK, EVERY 12 DAYS
     Route: 065
     Dates: start: 20180414
  94. TOCILIZUMAB. [Suspect]
     Active Substance: TOCILIZUMAB
     Indication: RHEUMATOID ARTHRITIS
     Dosage: 324 MG ONCE A DAY
     Route: 058
     Dates: start: 20140601, end: 201506
  95. TOCILIZUMAB. [Suspect]
     Active Substance: TOCILIZUMAB
     Indication: MYALGIA
     Dosage: 324 MG ONCE A DAY
     Route: 058
     Dates: start: 20140601, end: 201506
  96. TOCILIZUMAB. [Suspect]
     Active Substance: TOCILIZUMAB
     Indication: VASCULITIS
     Dosage: 324 MG EVERY 12 DAYS
     Route: 058
     Dates: start: 20150706, end: 20171025
  97. TOCILIZUMAB. [Suspect]
     Active Substance: TOCILIZUMAB
     Indication: TEMPORAL ARTERITIS
     Dosage: 162 MG, DAILY
     Route: 058
     Dates: start: 20180131
  98. TOCILIZUMAB. [Suspect]
     Active Substance: TOCILIZUMAB
     Indication: TEMPORAL ARTERITIS
     Dosage: 162 MG, UNK, EVERY 10 DAYS
     Route: 058
     Dates: start: 20180414
  99. TOCILIZUMAB. [Suspect]
     Active Substance: TOCILIZUMAB
     Indication: MYALGIA
     Dosage: 162 MG EVERY 14 DAYS
     Route: 058
     Dates: start: 20180414
  100. TOCILIZUMAB. [Suspect]
     Active Substance: TOCILIZUMAB
     Indication: RHEUMATOID ARTHRITIS
     Dosage: 162 MG EVERY THREE WEEKS
     Route: 058
     Dates: start: 201811
  101. PROLIA [Suspect]
     Active Substance: DENOSUMAB
     Indication: OFF LABEL USE
     Route: 065
     Dates: start: 201405
  102. ESCITALOPRAM [Concomitant]
     Active Substance: ESCITALOPRAM OXALATE
     Indication: PRODUCT USED FOR UNKNOWN INDICATION
     Dosage: 5 DROPS
     Route: 048

REACTIONS (27)
  - Soft tissue disorder [Recovered/Resolved]
  - Lymphoedema [Recovered/Resolved]
  - Eye inflammation [Recovering/Resolving]
  - Angioedema [Recovered/Resolved]
  - Erysipelas [Recovering/Resolving]
  - Hyperaesthesia [Unknown]
  - C-reactive protein increased [Recovering/Resolving]
  - Venous thrombosis limb [Not Recovered/Not Resolved]
  - Impaired healing [Recovered/Resolved]
  - Lymphocele [Recovered/Resolved]
  - Suture rupture [Recovered/Resolved]
  - Leukopenia [Recovered/Resolved]
  - Inappropriate schedule of product administration [Unknown]
  - Fall [Unknown]
  - Rash erythematous [Unknown]
  - Off label use [Unknown]
  - Depression [Not Recovered/Not Resolved]
  - Wound dehiscence [Recovered/Resolved]
  - Acetabulum fracture [Recovering/Resolving]
  - Sleep disorder [Unknown]
  - Autoimmune disorder [Unknown]
  - Bronchitis [Recovered/Resolved]
  - Platelet count decreased [Unknown]
  - Product use in unapproved indication [Unknown]
  - Sepsis [Recovering/Resolving]
  - Dysuria [Unknown]
  - Prostate cancer [Recovered/Resolved]

NARRATIVE: CASE EVENT DATE: 201407
